FAERS Safety Report 19424138 (Version 1)
Quarter: 2021Q2

REPORT INFORMATION
  Report Type: Spontaneous
  Country: US (occurrence: US)
  Receive Date: 20210616
  Receipt Date: 20210616
  Transmission Date: 20210717
  Serious: No
  Sender: FDA-Public Use
  Company Number: US-SA-2021SA198526

PATIENT
  Age: 51 Year
  Sex: Female

DRUGS (14)
  1. NORMAL SALINE [Concomitant]
     Active Substance: SODIUM CHLORIDE
  2. DEXILANT [Concomitant]
     Active Substance: DEXLANSOPRAZOLE
  3. FABRAZYME [Suspect]
     Active Substance: AGALSIDASE BETA
     Indication: FABRY^S DISEASE
  4. ACETAMINOPHEN. [Concomitant]
     Active Substance: ACETAMINOPHEN
  5. DIPHENHYDRAMINE. [Concomitant]
     Active Substance: DIPHENHYDRAMINE
  6. EPINEPHRINE. [Concomitant]
     Active Substance: EPINEPHRINE
  7. ASPIRIN [ACETYLSALICYLIC ACID] [Concomitant]
     Active Substance: ASPIRIN
  8. FABRAZYME [Suspect]
     Active Substance: AGALSIDASE BETA
     Indication: LIPIDOSIS
     Dosage: UNK
     Dates: start: 20110222
  9. LMX4 [Concomitant]
     Active Substance: LIDOCAINE
  10. HEPARIN [Concomitant]
     Active Substance: HEPARIN SODIUM
  11. ATORVASTATIN [Concomitant]
     Active Substance: ATORVASTATIN
  12. LISINOPRIL. [Concomitant]
     Active Substance: LISINOPRIL
  13. FLONASE [Concomitant]
     Active Substance: FLUTICASONE PROPIONATE
  14. LEXAPRO [Concomitant]
     Active Substance: ESCITALOPRAM OXALATE

REACTIONS (3)
  - Fatigue [Unknown]
  - Palpitations [Unknown]
  - Swelling [Unknown]
